FAERS Safety Report 6342466-6 (Version None)
Quarter: 2009Q3

REPORT INFORMATION
  Report Type: 
  Country: None (occurrence: None)
  Receive Date: 20090908
  Receipt Date: 20041116
  Transmission Date: 20100115
  Serious: No
  Sender: FDA-Public Use
  Company Number: FR-ROCHE-358162

PATIENT
  Sex: Male
  Weight: 3.3 kg

DRUGS (2)
  1. TAMIFLU [Suspect]
     Indication: DRUG USE FOR UNKNOWN INDICATION
  2. BIOCALYPTOL SYRUP [Concomitant]
     Indication: INFLUENZA
     Dates: start: 20031228, end: 20031229

REACTIONS (2)
  - MATERNAL DRUGS AFFECTING FOETUS [None]
  - NORMAL NEWBORN [None]
